FAERS Safety Report 9360072 (Version 7)
Quarter: 2013Q4

REPORT INFORMATION
  Report Type: Report from Study
  Country: US (occurrence: US)
  Receive Date: 20130621
  Receipt Date: 20131006
  Transmission Date: 20140711
  Serious: Yes (Other)
  Sender: FDA-Public Use
  Company Number: US-ROCHE-1238732

PATIENT
  Age: 66 Year
  Sex: Female
  Weight: 66.28 kg

DRUGS (10)
  1. ZELBORAF [Suspect]
     Indication: METASTATIC MALIGNANT MELANOMA
     Route: 048
     Dates: start: 20130612
  2. ZELBORAF [Suspect]
     Route: 048
     Dates: start: 20130528
  3. XARELTO [Suspect]
     Indication: ATRIAL FIBRILLATION
     Dosage: QD
     Route: 048
     Dates: start: 20120401
  4. PHENERGAN [Concomitant]
     Indication: NAUSEA
     Dosage: DAILY AT BED TIME
     Route: 048
  5. DEXILANT [Concomitant]
     Route: 048
  6. REGLAN [Concomitant]
     Route: 048
  7. ATENOLOL [Concomitant]
     Route: 065
  8. AMIODARONE [Concomitant]
     Indication: ATRIAL FIBRILLATION
     Dosage: QD
     Route: 065
     Dates: start: 20130401
  9. ZYRTEC [Concomitant]
     Indication: RASH
     Dosage: QD
     Route: 065
  10. ZYRTEC [Concomitant]
     Indication: PRURITUS

REACTIONS (17)
  - Haemoptysis [Recovered/Resolved]
  - Squamous cell carcinoma of skin [Unknown]
  - Constipation [Recovering/Resolving]
  - Erythema [Recovering/Resolving]
  - Rash [Not Recovered/Not Resolved]
  - Sunburn [Not Recovered/Not Resolved]
  - Pruritus [Not Recovered/Not Resolved]
  - Blood pressure increased [Recovering/Resolving]
  - Alopecia [Recovering/Resolving]
  - Piloerection [Recovered/Resolved]
  - Urticaria [Recovered/Resolved]
  - Rash macular [Unknown]
  - Alopecia [Not Recovered/Not Resolved]
  - Vision blurred [Recovering/Resolving]
  - Retinal tear [Not Recovered/Not Resolved]
  - Cataract [Not Recovered/Not Resolved]
  - Hypertension [Recovering/Resolving]
